FAERS Safety Report 5274266-2 (Version None)
Quarter: 2007Q1

REPORT INFORMATION
  Report Type: 
  Country: None (occurrence: None)
  Receive Date: 20070323
  Receipt Date: 20070313
  Transmission Date: 20070707
  Serious: Yes (Other)
  Sender: FDA-Public Use
  Company Number: BR-JNJFOC-20070304215

PATIENT
  Age: 7 Year
  Sex: Male
  Weight: 20 kg

DRUGS (10)
  1. TOPAMAX [Suspect]
     Indication: CONVULSION
     Route: 048
  2. MOTILIUM [Suspect]
     Indication: GASTROOESOPHAGEAL REFLUX DISEASE
     Route: 048
  3. DEPAKENE [Concomitant]
     Route: 048
  4. BROMOPRIDE [Concomitant]
     Dosage: 40 DROPS DAILY
     Route: 048
  5. OMEPRAZOLE [Concomitant]
     Indication: GASTRIC DISORDER
  6. BEROTEC [Concomitant]
  7. ATROVENT [Concomitant]
  8. ALLERGY MEDICATION [Concomitant]
     Indication: HYPERSENSITIVITY
     Route: 048
  9. COD LIVER OIL [Concomitant]
  10. NITRAZEPAM [Concomitant]
     Indication: CONVULSION
     Route: 048

REACTIONS (3)
  - PLATELET COUNT DECREASED [None]
  - RESPIRATORY DEPRESSION [None]
  - SOMNOLENCE [None]
